FAERS Safety Report 12550135 (Version 1)
Quarter: 2016Q3

REPORT INFORMATION
  Report Type: Spontaneous
  Country: RU (occurrence: RU)
  Receive Date: 20160712
  Receipt Date: 20160712
  Transmission Date: 20161109
  Serious: Yes (Hospitalization)
  Sender: FDA-Public Use
  Company Number: RU-ASTRAZENECA-2016SE73276

PATIENT
  Age: 47 Year
  Sex: Male
  Weight: 74 kg

DRUGS (11)
  1. INSPRA [Concomitant]
     Active Substance: EPLERENONE
  2. PRESTARIUM A [Concomitant]
     Active Substance: PERINDOPRIL ARGININE
  3. METFORMIN [Concomitant]
     Active Substance: METFORMIN HYDROCHLORIDE
  4. INDAPAMIDE. [Concomitant]
     Active Substance: INDAPAMIDE
  5. BRILINTA [Suspect]
     Active Substance: TICAGRELOR
     Indication: STENT PLACEMENT
     Route: 048
     Dates: start: 20151129
  6. PERINEVA [Concomitant]
     Active Substance: PERINDOPRIL ERBUMINE
  7. THROMBO ASS [Concomitant]
     Active Substance: ASPIRIN
  8. BETALOC ZOK [Concomitant]
     Active Substance: METOPROLOL SUCCINATE
  9. CORAXAN [Concomitant]
     Active Substance: IVABRADINE HYDROCHLORIDE
  10. BRILINTA [Suspect]
     Active Substance: TICAGRELOR
     Indication: MYOCARDIAL INFARCTION
     Route: 048
     Dates: start: 20151129
  11. LIPRIMAR [Concomitant]
     Active Substance: ATORVASTATIN CALCIUM

REACTIONS (2)
  - Product quality issue [Unknown]
  - Vascular occlusion [Recovered/Resolved]

NARRATIVE: CASE EVENT DATE: 20160701
